FAERS Safety Report 7435531-3 (Version None)
Quarter: 2011Q2

REPORT INFORMATION
  Report Type: 
  Country: None (occurrence: None)
  Receive Date: 20110425
  Receipt Date: 20110418
  Transmission Date: 20111010
  Serious: Yes (Other)
  Sender: FDA-Public Use
  Company Number: US-ELI_LILLY_AND_COMPANY-US201104006494

PATIENT
  Age: 66 Year
  Sex: Female

DRUGS (7)
  1. CYMBALTA [Suspect]
     Dosage: 30 MG, EACH EVENING
  2. ANTIHYPERTENSIVES [Concomitant]
     Indication: HYPERTENSION
     Dosage: UNK
  3. HUMALOG [Suspect]
     Indication: DIABETES MELLITUS
  4. CYMBALTA [Suspect]
     Indication: DEPRESSION
     Dosage: 60 MG, EACH MORNING
     Dates: start: 20010101
  5. CYMBALTA [Suspect]
     Dosage: 60 MG, EACH MORNING
     Dates: start: 20010101
  6. CYMBALTA [Suspect]
     Dosage: 30 MG, EACH EVENING
  7. NOVOLOG [Concomitant]
     Dosage: UNK

REACTIONS (6)
  - BREAST CANCER STAGE IV [None]
  - DRUG INEFFECTIVE [None]
  - DEPRESSION [None]
  - CATARACT [None]
  - EMOTIONAL DISTRESS [None]
  - VISUAL ACUITY REDUCED [None]
